FAERS Safety Report 9558938 (Version 1)
Quarter: 2013Q3

REPORT INFORMATION
  Report Type: Spontaneous
  Country: CA (occurrence: CA)
  Receive Date: 20130927
  Receipt Date: 20130927
  Transmission Date: 20140515
  Serious: Yes (Other)
  Sender: FDA-Public Use
  Company Number: CA-ROCHE-1280462

PATIENT
  Age: 56 Year
  Sex: Male

DRUGS (6)
  1. PEGASYS [Suspect]
     Indication: PRODUCT USED FOR UNKNOWN INDICATION
     Route: 058
  2. RIBAVIRIN [Suspect]
     Indication: PRODUCT USED FOR UNKNOWN INDICATION
     Route: 048
  3. VICTRELIS [Suspect]
     Indication: PRODUCT USED FOR UNKNOWN INDICATION
     Route: 065
  4. DIAMICRON [Concomitant]
     Route: 065
  5. FLOVENT [Concomitant]
     Route: 065
  6. WELLBUTRIN [Concomitant]
     Dosage: EXTENDED RELEASE TABLET
     Route: 065

REACTIONS (1)
  - Respiratory distress [Not Recovered/Not Resolved]
